FAERS Safety Report 4861401-0 (Version None)
Quarter: 2005Q4

REPORT INFORMATION
  Report Type: 
  Country: None (occurrence: None)
  Receive Date: 20051220
  Receipt Date: 20051208
  Transmission Date: 20060501
  Serious: Yes (Death)
  Sender: FDA-Public Use
  Company Number: US-ROCHE-428129

PATIENT
  Age: 3 Year
  Sex: Female
  Weight: 15.9 kg

DRUGS (1)
  1. TAMIFLU [Suspect]
     Route: 048
     Dates: start: 20040127

REACTIONS (4)
  - INFLUENZA [None]
  - PNEUMONIA [None]
  - RESPIRATORY ARREST [None]
  - STREPTOCOCCAL INFECTION [None]
